FAERS Safety Report 25806323 (Version 1)
Quarter: 2025Q3

REPORT INFORMATION
  Report Type: Spontaneous
  Country: EU (occurrence: EU)
  Receive Date: 20250916
  Receipt Date: 20250916
  Transmission Date: 20251021
  Serious: Yes (Other)
  Sender: SANOFI AVENTIS
  Company Number: None

PATIENT
  Age: 5 Year
  Sex: Male

DRUGS (7)
  1. ANTI-THYMOCYTE GLOBULIN (RABBIT) NOS [Suspect]
     Active Substance: LAPINE T-LYMPHOCYTE IMMUNE GLOBULIN
     Indication: Thalassaemia beta
  2. FLUDARABINE PHOSPHATE [Suspect]
     Active Substance: FLUDARABINE PHOSPHATE
     Indication: Thalassaemia beta
  3. METHOTREXATE [Suspect]
     Active Substance: METHOTREXATE
     Indication: Prophylaxis against graft versus host disease
  4. TEPADINA [Suspect]
     Active Substance: THIOTEPA
     Indication: Thalassaemia beta
  5. TREOSULFAN [Suspect]
     Active Substance: TREOSULFAN
     Indication: Thalassaemia beta
  6. CYCLOSPORINE [Suspect]
     Active Substance: CYCLOSPORINE
     Indication: Prophylaxis against graft versus host disease
  7. DEFERASIROX [Concomitant]
     Active Substance: DEFERASIROX
     Indication: Chelation therapy

REACTIONS (9)
  - Undifferentiated sarcoma [Recovering/Resolving]
  - Soft tissue sarcoma [Recovering/Resolving]
  - Abdominal pain [Recovering/Resolving]
  - Pelvic mass [Recovering/Resolving]
  - Abdominal mass [Recovering/Resolving]
  - Metastases to lung [Recovering/Resolving]
  - Mucosal inflammation [Unknown]
  - Pneumonia cytomegaloviral [Unknown]
  - Pyrexia [Unknown]
